FAERS Safety Report 23339935 (Version 1)
Quarter: 2023Q4

REPORT INFORMATION
  Report Type: Spontaneous
  Country: ES (occurrence: ES)
  Receive Date: 20231226
  Receipt Date: 20231226
  Transmission Date: 20240110
  Serious: Yes (Hospitalization, Other)
  Sender: FDA-Public Use
  Company Number: ES-AEMPS-1462651

PATIENT
  Age: 91 Year
  Sex: Female

DRUGS (9)
  1. FUROSEMIDE [Suspect]
     Active Substance: FUROSEMIDE
     Indication: Cardiac failure
     Dosage: 40 MILLIGRAM, ONCE A DAY
     Route: 048
     Dates: start: 20220709, end: 20230720
  2. OMEPRAZOLE [Concomitant]
     Active Substance: OMEPRAZOLE
     Indication: Osteoarthritis
     Dosage: 200 MILLIGRAM, ONCE A DAY
     Route: 048
     Dates: start: 20120517
  3. ACETAMINOPHEN\TRAMADOL [Concomitant]
     Active Substance: ACETAMINOPHEN\TRAMADOL
     Indication: Arthralgia
     Dosage: 1 DOSAGE FORM, TWO TIMES A DAY
     Route: 048
     Dates: start: 20190725
  4. Deprax [Concomitant]
     Indication: Anxiety
     Dosage: 100 MILLIGRAM, ONCE A DAY
     Route: 048
     Dates: start: 20161005
  5. AMLODIPINE BESYLATE [Concomitant]
     Active Substance: AMLODIPINE BESYLATE
     Indication: Hypertension
     Dosage: 5 MILLIGRAM, ONCE A DAY
     Route: 048
     Dates: start: 20131210
  6. BIMATOPROST\TIMOLOL [Concomitant]
     Active Substance: BIMATOPROST\TIMOLOL
     Indication: Glaucoma
     Dosage: 1 GTT DROPS, ONCE A DAY
     Dates: start: 20130928
  7. Bilastina teva [Concomitant]
     Indication: Pruritus
     Dosage: 20 MILLIGRAM, ONCE A DAY
     Route: 048
     Dates: start: 20230502
  8. HYDROCHLOROTHIAZIDE\LOSARTAN [Concomitant]
     Active Substance: HYDROCHLOROTHIAZIDE\LOSARTAN
     Indication: Essential hypertension
     Dosage: 50 MILLIGRAM, TWO TIMES A DAY
     Route: 048
     Dates: start: 20080822
  9. LYRICA CR [Concomitant]
     Active Substance: PREGABALIN
     Indication: Hyperaesthesia
     Dosage: 50 MILLIGRAM, TWO TIMES A DAY
     Route: 048
     Dates: start: 20170629

REACTIONS (1)
  - Acute kidney injury [Recovered/Resolved]

NARRATIVE: CASE EVENT DATE: 20230720
